FAERS Safety Report 6602964-4 (Version None)
Quarter: 2010Q1

REPORT INFORMATION
  Report Type: 
  Country: None (occurrence: None)
  Receive Date: 20100219
  Receipt Date: 20100212
  Transmission Date: 20100710
  Serious: Yes (Death, Hospitalization)
  Sender: FDA-Public Use
  Company Number: FKO201000032

PATIENT
  Age: 64 Year
  Sex: Male

DRUGS (2)
  1. OXALIPLATIN [Suspect]
     Indication: COLORECTAL CANCER
     Dates: start: 20090701, end: 20090701
  2. XELODA (CAPECITABINE) (CAPECITABINE) [Concomitant]

REACTIONS (1)
  - MALAISE [None]
